FAERS Safety Report 6071736-4 (Version None)
Quarter: 2009Q1

REPORT INFORMATION
  Report Type: 
  Country: None (occurrence: None)
  Receive Date: 20090209
  Receipt Date: 20090209
  Transmission Date: 20090719
  Serious: Yes (Other)
  Sender: FDA-Public Use
  Company Number: None

PATIENT
  Age: 77 Year
  Sex: Female
  Weight: 52.1637 kg

DRUGS (5)
  1. DETROL LA [Suspect]
     Indication: URINARY TRACT DISORDER
     Dosage: 2 MG 1 PER DAY MOUTH
     Route: 048
     Dates: start: 20081022, end: 20081115
  2. DETROL LA [Suspect]
     Indication: URINARY TRACT DISORDER
     Dosage: 4 MG 1 PER DAY MOUTH
     Route: 048
     Dates: start: 20081103, end: 20081111
  3. LEVOYL [Concomitant]
  4. ARICEPT [Concomitant]
  5. FOLIC ACID [Concomitant]

REACTIONS (6)
  - ABNORMAL BEHAVIOUR [None]
  - ANXIETY [None]
  - CHEST PAIN [None]
  - CONFUSIONAL STATE [None]
  - DELUSION [None]
  - HALLUCINATION [None]
